FAERS Safety Report 5063176-1 (Version None)
Quarter: 2006Q3

REPORT INFORMATION
  Report Type: 
  Country: None (occurrence: None)
  Receive Date: 20060724
  Receipt Date: 20060712
  Transmission Date: 20061208
  Serious: Yes (Other)
  Sender: FDA-Public Use
  Company Number: 2006087452

PATIENT
  Sex: Male
  Weight: 106.5953 kg

DRUGS (2)
  1. ZOLOFT [Suspect]
     Indication: DEPRESSION
     Dosage: (25 MG
     Dates: start: 19960101
  2. SERZONE [Concomitant]

REACTIONS (3)
  - DRUG INEFFECTIVE [None]
  - HEPATIC CIRRHOSIS [None]
  - LIVER FUNCTION TEST ABNORMAL [None]
